FAERS Safety Report 25956847 (Version 1)
Quarter: 2025Q4

REPORT INFORMATION
  Report Type: Spontaneous
  Country: US (occurrence: None)
  Receive Date: 20251023
  Receipt Date: 20251023
  Transmission Date: 20260118
  Serious: Yes (Hospitalization)
  Sender: FDA-CTU
  Company Number: None

PATIENT
  Age: 76 Year
  Sex: Female
  Weight: 104 kg

DRUGS (3)
  1. TIRZEPATIDE [Suspect]
     Active Substance: TIRZEPATIDE
     Indication: Diabetes mellitus
     Dosage: OTHER FREQUENCY : WEEKLY;?
     Route: 058
     Dates: start: 20250522
  2. RUXOLITINIB [Suspect]
     Active Substance: RUXOLITINIB
     Indication: Myelodysplastic syndrome
     Dosage: FREQUENCY : TWICE A DAY;?
     Route: 048
     Dates: start: 20240821
  3. JAKAFI [Suspect]
     Active Substance: RUXOLITINIB

REACTIONS (15)
  - Feeling abnormal [None]
  - Dysuria [None]
  - Hypoxia [None]
  - Fatigue [None]
  - Constipation [None]
  - Diarrhoea [None]
  - Sepsis [None]
  - Urinary tract infection [None]
  - Leukocytosis [None]
  - Encephalopathy [None]
  - Acute kidney injury [None]
  - Hypovolaemia [None]
  - Hyponatraemia [None]
  - Hypokalaemia [None]
  - Fournier^s gangrene [None]

NARRATIVE: CASE EVENT DATE: 20251001
